FAERS Safety Report 8271093-9 (Version None)
Quarter: 2012Q2

REPORT INFORMATION
  Report Type: 
  Country: None (occurrence: None)
  Receive Date: 20120410
  Receipt Date: 20120329
  Transmission Date: 20120825
  Serious: Yes (Other)
  Sender: FDA-Public Use
  Company Number: JP-PFIZER INC-2012069730

PATIENT
  Age: 81 Year
  Sex: Male

DRUGS (3)
  1. LIPITOR [Suspect]
     Dosage: 5 MG, DAILY
     Route: 048
     Dates: start: 20110101
  2. NICARDIPINE HCL [Suspect]
  3. CANDESARTAN CILEXETIL [Concomitant]
     Dosage: UNK

REACTIONS (1)
  - PNEUMONIA [None]
